FAERS Safety Report 21619487 (Version 2)
Quarter: 2023Q2

REPORT INFORMATION
  Report Type: Spontaneous
  Country: US (occurrence: US)
  Receive Date: 20221121
  Receipt Date: 20230530
  Transmission Date: 20230721
  Serious: No
  Sender: FDA-Public Use
  Company Number: US-SA-SAC20221117001377

PATIENT
  Sex: Male

DRUGS (1)
  1. DUPIXENT [Suspect]
     Active Substance: DUPILUMAB
     Indication: Dermatitis atopic
     Dosage: 200 MG, QM
     Route: 058

REACTIONS (5)
  - Hyperhidrosis [Unknown]
  - Weight increased [Unknown]
  - Drug ineffective [Unknown]
  - Dermatitis atopic [Not Recovered/Not Resolved]
  - Product dose omission issue [Not Recovered/Not Resolved]
